FAERS Safety Report 10306452 (Version 1)
Quarter: 2014Q3

REPORT INFORMATION
  Report Type: Spontaneous
  Country: US (occurrence: US)
  Receive Date: 20140715
  Receipt Date: 20140715
  Transmission Date: 20150326
  Serious: Yes (Hospitalization)
  Sender: FDA-Public Use
  Company Number: US-FRI-1000068949

PATIENT
  Age: 78 Year
  Sex: Female
  Weight: 94 kg

DRUGS (4)
  1. LEXAPRO [Suspect]
     Active Substance: ESCITALOPRAM OXALATE
     Indication: DEPRESSION
     Dates: start: 20140401, end: 20140515
  2. TOPAMAX [Suspect]
     Active Substance: TOPIRAMATE
     Indication: HEADACHE
     Dates: start: 20140401, end: 20140515
  3. TRAMADOL [Suspect]
     Active Substance: TRAMADOL
     Indication: BACK PAIN
     Dates: start: 2014, end: 20140515
  4. HUMIRA [Suspect]
     Active Substance: ADALIMUMAB
     Indication: RHEUMATOID ARTHRITIS
     Dosage: 40 MG EVERY OTHER WEEK

REACTIONS (10)
  - Pseudodementia [Unknown]
  - Vomiting [Recovering/Resolving]
  - Toxicity to various agents [Unknown]
  - Activities of daily living impaired [Recovering/Resolving]
  - Depression [Unknown]
  - Headache [Unknown]
  - Dementia [Recovering/Resolving]
  - Abasia [Recovering/Resolving]
  - Encephalopathy [Unknown]
  - Amnesia [Recovering/Resolving]

NARRATIVE: CASE EVENT DATE: 201404
